FAERS Safety Report 8031365-X (Version None)
Quarter: 2012Q1

REPORT INFORMATION
  Report Type: 
  Country: None (occurrence: None)
  Receive Date: 20120109
  Receipt Date: 20120106
  Transmission Date: 20120608
  Serious: Yes (Hospitalization)
  Sender: FDA-Public Use
  Company Number: GB-ROCHE-1028432

PATIENT
  Sex: Male
  Weight: 90 kg

DRUGS (3)
  1. STEROIDS - UNKNOWN TYPE [Concomitant]
  2. METHOTREXATE [Concomitant]
  3. MABTHERA [Suspect]
     Indication: RHEUMATOID ARTHRITIS
     Dates: start: 20100309, end: 20110324

REACTIONS (1)
  - DEMYELINATING POLYNEUROPATHY [None]
